FAERS Safety Report 8734914 (Version 2)
Quarter: 2012Q4

REPORT INFORMATION
  Report Type: 
  Country: US (occurrence: US)
  Receive Date: 20120821
  Receipt Date: 20120830
  Transmission Date: 20130627
  Serious: Yes (Other)
  Sender: FDA-Public Use
  Company Number: US-WATSON-2012-13689

PATIENT
  Age: 34 Year
  Sex: Female
  Weight: 62 kg

DRUGS (1)
  1. CRINONE [Suspect]
     Indication: PREGNANCY
     Dosage: once a day
     Route: 067
     Dates: start: 20120727, end: 20120805

REACTIONS (6)
  - Ectopic pregnancy [Recovered/Resolved]
  - Vaginal discharge [Recovered/Resolved]
  - Vaginal haemorrhage [Recovered/Resolved]
  - Abdominal pain lower [Recovered/Resolved]
  - Abdominal pain [Recovering/Resolving]
  - Exposure during pregnancy [None]
